FAERS Safety Report 23751582 (Version 10)
Quarter: 2025Q4

REPORT INFORMATION
  Report Type: Spontaneous
  Country: US (occurrence: US)
  Receive Date: 20240417
  Receipt Date: 20251028
  Transmission Date: 20260118
  Serious: Yes (Hospitalization)
  Sender: PFIZER
  Company Number: US-PFIZER INC-PV202400049685

PATIENT
  Age: 55 Year
  Sex: Female

DRUGS (6)
  1. IBRANCE [Suspect]
     Active Substance: PALBOCICLIB
     Indication: Breast cancer female
     Dosage: 1 TAB DAILY FOR 21 DAYS FOLLOWED BY 1 WEEK OFF
     Route: 048
  2. IBRANCE [Suspect]
     Active Substance: PALBOCICLIB
     Indication: Agranulocytosis
     Dosage: 1 TAB DAILY FOR 21 DAYS FOLLOWED BY 1 WEEK OFF
     Route: 048
     Dates: start: 20240502
  3. IBRANCE [Suspect]
     Active Substance: PALBOCICLIB
     Indication: Lymphadenopathy
  4. IBRANCE [Suspect]
     Active Substance: PALBOCICLIB
     Indication: Oestrogen receptor assay positive
  5. IBRANCE [Suspect]
     Active Substance: PALBOCICLIB
     Indication: Chemotherapy
  6. IBRANCE [Suspect]
     Active Substance: PALBOCICLIB
     Indication: Laboratory test abnormal

REACTIONS (3)
  - Illness [Unknown]
  - Product prescribing error [Unknown]
  - Rash [Unknown]

NARRATIVE: CASE EVENT DATE: 20240320
